FAERS Safety Report 7770980-5 (Version None)
Quarter: 2011Q3

REPORT INFORMATION
  Report Type: 
  Country: None (occurrence: None)
  Receive Date: 20110922
  Receipt Date: 20110418
  Transmission Date: 20111222
  Serious: Yes (Other)
  Sender: FDA-Public Use
  Company Number: US-ASTRAZENECA-2006UW19006

PATIENT
  Age: 6607 Day
  Sex: Male
  Weight: 105.7 kg

DRUGS (3)
  1. TRAZODONE HYDROCHLORIDE [Concomitant]
     Dates: start: 20000101
  2. SEROQUEL [Suspect]
     Indication: SLEEP DISORDER
     Route: 048
     Dates: start: 20020301, end: 20020601
  3. DEPAKOTE [Concomitant]
     Dates: start: 20000101

REACTIONS (6)
  - PANCREATITIS [None]
  - TYPE 1 DIABETES MELLITUS [None]
  - DIABETES MELLITUS INADEQUATE CONTROL [None]
  - TYPE 2 DIABETES MELLITUS [None]
  - DIABETIC KETOACIDOSIS [None]
  - PANCREATITIS ACUTE [None]
